FAERS Safety Report 4272642-8 (Version None)
Quarter: 2004Q1

REPORT INFORMATION
  Report Type: 
  Country: None (occurrence: None)
  Receive Date: 20040115
  Receipt Date: 20040115
  Transmission Date: 20041129
  Serious: No
  Sender: FDA-Public Use
  Company Number: None

PATIENT
  Sex: Male
  Weight: 90.7194 kg

DRUGS (2)
  1. LIPITOR [Suspect]
     Indication: BLOOD CHOLESTEROL INCREASED
     Dosage: LIPITOR 1 PER DAY ORAL
     Route: 048
     Dates: start: 20030501, end: 20030730
  2. LESCOL [Suspect]
     Indication: BLOOD CHOLESTEROL INCREASED
     Dosage: LESCOL 1 PER DAY ORAL
     Route: 048
     Dates: start: 20030901, end: 20030914

REACTIONS (6)
  - ARTHRALGIA [None]
  - DIFFICULTY IN WALKING [None]
  - JOINT SWELLING [None]
  - OEDEMA PERIPHERAL [None]
  - RHEUMATOID ARTHRITIS [None]
  - TREATMENT NONCOMPLIANCE [None]
